FAERS Safety Report 6297864-6 (Version None)
Quarter: 2009Q3

REPORT INFORMATION
  Report Type: 
  Country: None (occurrence: None)
  Receive Date: 20090805
  Receipt Date: 20090803
  Transmission Date: 20100115
  Serious: Yes (Hospitalization)
  Sender: FDA-Public Use
  Company Number: A0800315A

PATIENT
  Age: 72 Year
  Sex: Female
  Weight: 104 kg

DRUGS (10)
  1. ALLI [Suspect]
     Indication: WEIGHT LOSS DIET
     Route: 048
     Dates: start: 20090601, end: 20090101
  2. FIBERCHOICE WEIGHT MANAGEMENT SUGAR FREE STRAWBERRY [Suspect]
     Indication: DRUG USE FOR UNKNOWN INDICATION
     Route: 048
     Dates: start: 20090101
  3. CIPRO [Suspect]
     Indication: DIVERTICULITIS
     Route: 042
  4. LEVOTHYROXINE SODIUM [Concomitant]
  5. ATENOLOL [Concomitant]
  6. MAXZIDE [Concomitant]
  7. ARIMIDEX [Concomitant]
  8. METHOTREXATE [Concomitant]
  9. MEVACOR [Concomitant]
  10. ASPIRIN [Concomitant]

REACTIONS (12)
  - APHASIA [None]
  - COLITIS [None]
  - DIARRHOEA [None]
  - DIVERTICULITIS [None]
  - DYSPEPSIA [None]
  - DYSPNOEA [None]
  - GASTROINTESTINAL DISORDER [None]
  - GOUT [None]
  - MALAISE [None]
  - NAUSEA [None]
  - RECTAL DISCHARGE [None]
  - VOMITING [None]
